FAERS Safety Report 24953360 (Version 2)
Quarter: 2025Q1

REPORT INFORMATION
  Report Type: Spontaneous
  Country: US (occurrence: US)
  Receive Date: 20250211
  Receipt Date: 20250307
  Transmission Date: 20250408
  Serious: Yes (Hospitalization, Other)
  Sender: JOHNSON AND JOHNSON
  Company Number: US-JNJFOC-20250191095

PATIENT
  Sex: Male

DRUGS (1)
  1. CARVYKTI [Suspect]
     Active Substance: CILTACABTAGENE AUTOLEUCEL
     Indication: Product used for unknown indication
     Route: 065

REACTIONS (6)
  - Neuralgic amyotrophy [Recovering/Resolving]
  - Unevaluable event [Recovering/Resolving]
  - Cytokine storm [Recovering/Resolving]
  - Renal injury [Not Recovered/Not Resolved]
  - Liver injury [Recovering/Resolving]
  - Malignant melanoma [Unknown]
